FAERS Safety Report 7206430-7 (Version None)
Quarter: 2010Q4

REPORT INFORMATION
  Report Type: 
  Country: None (occurrence: None)
  Receive Date: 20101217
  Receipt Date: 20101202
  Transmission Date: 20110411
  Serious: Yes (Hospitalization)
  Sender: FDA-Public Use
  Company Number: 023063

PATIENT
  Sex: Female
  Weight: 92 kg

DRUGS (21)
  1. CERTOLIZUMAB PEGOL (CERTOLIZUMAB PEGOL) [Suspect]
     Indication: RHEUMATOID ARTHRITIS
     Dosage: (400 MG 1X/2 WEEKS SUBCUTANEOUS), (200 MG LX/2 WEEKS SUBCUTANEOUS)
     Route: 058
     Dates: start: 20050915
  2. FOLIC ACID [Concomitant]
  3. OXYCONTIN [Concomitant]
  4. METHOTREXATE [Concomitant]
  5. MELOXICAM [Concomitant]
  6. FUROSEMIDE [Concomitant]
  7. POLY GEL (ALL OTHER THERAPEUTIC PRODUCTS) [Concomitant]
  8. POLY VISC (ALL OTHER THERAPEUTIC PRODUCTS) [Concomitant]
  9. PARACETAMOL [Concomitant]
  10. PROMETHAZINE [Concomitant]
  11. IMIGRAN /01044801/ [Concomitant]
  12. CODALGIN /00116401/ [Concomitant]
  13. MAXOLON [Concomitant]
  14. DIAZEPAM [Concomitant]
  15. LIPITOR [Concomitant]
  16. DOXEPIN HCL [Concomitant]
  17. MOGADON [Concomitant]
  18. SOTALOL [Concomitant]
  19. WARFARIN SODIUM [Concomitant]
  20. METFORMIN HCL [Concomitant]
  21. DIAMICRON [Concomitant]

REACTIONS (6)
  - HAEMODYNAMIC INSTABILITY [None]
  - HYPOTENSION [None]
  - LOWER RESPIRATORY TRACT INFECTION [None]
  - LUNG CONSOLIDATION [None]
  - PULMONARY OEDEMA [None]
  - TROPONIN INCREASED [None]
